FAERS Safety Report 5685234-0 (Version None)
Quarter: 2008Q1

REPORT INFORMATION
  Report Type: 
  Country: None (occurrence: None)
  Receive Date: 20080328
  Receipt Date: 20080317
  Transmission Date: 20080703
  Serious: Yes (Other)
  Sender: FDA-Public Use
  Company Number: US-ELI_LILLY_AND_COMPANY-US200801003090

PATIENT
  Sex: Female

DRUGS (10)
  1. CYMBALTA [Suspect]
     Indication: MAJOR DEPRESSION
     Dosage: 30 MG, UNK
     Dates: start: 20071215, end: 20071221
  2. CYMBALTA [Suspect]
     Dosage: 60 MG, UNK
     Dates: start: 20071222, end: 20071228
  3. CYMBALTA [Suspect]
     Dosage: 90 MG, DAILY (1/D)
     Route: 048
     Dates: start: 20071229, end: 20080101
  4. VERAPAMIL [Concomitant]
     Dosage: 240 MG, UNK
  5. LEXAPRO [Concomitant]
     Dosage: 10 MG, UNK
  6. PROVIGIL [Concomitant]
     Dosage: 300 MG, UNK
  7. PROVIGIL [Concomitant]
     Dosage: 400 MG, UNK
  8. SONATA [Concomitant]
     Dosage: 10 MG, UNK
  9. OXYBUTYNIN CHLORIDE [Concomitant]
     Dosage: 5 MG, UNK
  10. PREDNISONE TAB [Concomitant]
     Dosage: 2.5 MG, QOD

REACTIONS (2)
  - CONVULSION [None]
  - LOSS OF CONSCIOUSNESS [None]
